FAERS Safety Report 4560841-7 (Version None)
Quarter: 2005Q1

REPORT INFORMATION
  Report Type: 
  Country: None (occurrence: None)
  Receive Date: 20050121
  Receipt Date: 20050113
  Transmission Date: 20050727
  Serious: Yes (Death)
  Sender: FDA-Public Use
  Company Number: 2004AP06278

PATIENT
  Age: 79 Year
  Sex: Male

DRUGS (3)
  1. CASODEX [Suspect]
     Indication: PROSTATE CANCER
     Dosage: 80 MG DAILY PO
     Route: 048
     Dates: start: 20040712, end: 20041210
  2. LEUPLIN [Suspect]
     Indication: PROSTATE CANCER
     Dosage: 3.75 MG Q4WK SQ
     Route: 058
     Dates: start: 20040722, end: 20041202
  3. INFLUENZA HA VACCINE [Suspect]
     Indication: INFLUENZA IMMUNISATION
     Dosage: 0.5 ML DAILY SQ
     Route: 058
     Dates: start: 20041122, end: 20041122

REACTIONS (5)
  - CONDITION AGGRAVATED [None]
  - LUNG NEOPLASM MALIGNANT [None]
  - METASTASES TO LUNG [None]
  - PYREXIA [None]
  - WHITE BLOOD CELL COUNT INCREASED [None]
